FAERS Safety Report 13139586 (Version 1)
Quarter: 2017Q1

REPORT INFORMATION
  Report Type: Spontaneous
  Country: US (occurrence: US)
  Receive Date: 20170123
  Receipt Date: 20170123
  Transmission Date: 20170428
  Serious: No
  Sender: FDA-Public Use
  Company Number: US-REGENERON PHARMACEUTICALS, INC.-2016-20515

PATIENT

DRUGS (2)
  1. AREDSAN [Concomitant]
     Indication: PRODUCT USED FOR UNKNOWN INDICATION
     Dosage: EVERY 6 OR 8 WEEKS, MAYBE 6 WEEKS
     Route: 031
  2. EYLEA [Suspect]
     Active Substance: AFLIBERCEPT
     Indication: NEOVASCULAR AGE-RELATED MACULAR DEGENERATION
     Dosage: UNK
     Dates: start: 2013

REACTIONS (2)
  - Vitreous floaters [Not Recovered/Not Resolved]
  - Visual impairment [Not Recovered/Not Resolved]
